FAERS Safety Report 9060256 (Version 1)
Quarter: 2013Q1

REPORT INFORMATION
  Report Type: Spontaneous
  Country: US (occurrence: None)
  Receive Date: 20130207
  Receipt Date: 20130207
  Transmission Date: 20140127
  Serious: Yes (Life-Threatening)
  Sender: FDA-Public Use
  Company Number: None

PATIENT
  Sex: Female
  Weight: 40.7 kg

DRUGS (1)
  1. SINGULAIR [Suspect]
     Dosage: 5 MG 1 QID AT BEDTIME ORALLY
     Route: 048
     Dates: start: 200502, end: 20120927

REACTIONS (15)
  - Mood swings [None]
  - Irritability [None]
  - Aggression [None]
  - Hostility [None]
  - Aggression [None]
  - Pain [None]
  - Joint contracture [None]
  - Asthenia [None]
  - Trigger finger [None]
  - Paraesthesia [None]
  - Encopresis [None]
  - Myopia [None]
  - Tic [None]
  - Muscle spasms [None]
  - Suicidal ideation [None]
